FAERS Safety Report 5386042-0 (Version None)
Quarter: 2007Q3

REPORT INFORMATION
  Report Type: 
  Country: None (occurrence: None)
  Receive Date: 20070710
  Receipt Date: 20070625
  Transmission Date: 20080115
  Serious: No
  Sender: FDA-Public Use
  Company Number: US020427

PATIENT
  Age: 1 Year
  Sex: Male
  Weight: 10 kg

DRUGS (1)
  1. ACTIQ [Suspect]
     Dosage: 600 UG ONCE ORAL
     Route: 048
     Dates: start: 20051201, end: 20051201

REACTIONS (1)
  - ACCIDENTAL DRUG INTAKE BY CHILD [None]
